FAERS Safety Report 8128818-2 (Version None)
Quarter: 2012Q1

REPORT INFORMATION
  Report Type: 
  Country: None (occurrence: None)
  Receive Date: 20120210
  Receipt Date: 20110314
  Transmission Date: 20120608
  Serious: No
  Sender: FDA-Public Use
  Company Number: US-BRISTOL-MYERS SQUIBB COMPANY-15606627

PATIENT
  Age: 53 Year
  Sex: Female

DRUGS (2)
  1. ORENCIA [Suspect]
     Dosage: SECOND INFUSION (BELIEVED TO BE THE LAST WEEK OF FEBRUARY)
  2. METHOTREXATE [Suspect]

REACTIONS (1)
  - INFECTION [None]
